FAERS Safety Report 8322266-8 (Version None)
Quarter: 2012Q2

REPORT INFORMATION
  Report Type: 
  Country: None (occurrence: None)
  Receive Date: 20120430
  Receipt Date: 20120426
  Transmission Date: 20120825
  Serious: Yes (Hospitalization, Other)
  Sender: FDA-Public Use
  Company Number: FR-PFIZER INC-2012093723

PATIENT
  Age: 37 Year
  Sex: Female

DRUGS (4)
  1. TRAMADOL HCL [Suspect]
     Dosage: UNK
     Route: 048
     Dates: start: 20071101
  2. ACETAMINOPHEN AND TRAMADOL HCL [Suspect]
     Dosage: UNK
     Route: 048
     Dates: start: 20071101
  3. LYRICA [Suspect]
     Dosage: UNK
     Route: 048
     Dates: start: 20071101
  4. AMITRIPTYLINE HCL [Suspect]
     Dosage: UNK
     Route: 048
     Dates: start: 20071101

REACTIONS (2)
  - CYST [None]
  - COAGULOPATHY [None]
